FAERS Safety Report 4902400-X (Version None)
Quarter: 2006Q1

REPORT INFORMATION
  Report Type: 
  Country: None (occurrence: None)
  Receive Date: 20060202
  Receipt Date: 20060123
  Transmission Date: 20060701
  Serious: Yes (Hospitalization)
  Sender: FDA-Public Use
  Company Number: DEU-2005-0001809

PATIENT
  Age: 74 Year
  Sex: Male
  Weight: 74 kg

DRUGS (12)
  1. OXYCODONE HCL [Suspect]
     Indication: BACK PAIN
     Dosage: SEE TEXT, ORAL
     Route: 048
     Dates: start: 20051027, end: 20051101
  2. OXYCODONE HCL [Suspect]
     Indication: BACK PAIN
     Dosage: SEE TEXT, ORAL
     Route: 048
     Dates: start: 20051102, end: 20051106
  3. OXYCODONE HCL [Suspect]
     Indication: BACK PAIN
     Dosage: SEE TEXT, ORAL
     Route: 048
     Dates: start: 20051107, end: 20051109
  4. OXYCODONE HCL [Suspect]
     Indication: BACK PAIN
     Dosage: SEE TEXT, ORAL
     Route: 048
     Dates: start: 20051110, end: 20051113
  5. OXYCODONE HCL [Suspect]
     Indication: BACK PAIN
     Dosage: SEE TEXT, ORAL
     Route: 048
     Dates: start: 20051110, end: 20051113
  6. ACETYLSALICYLIC ACID SRT [Concomitant]
  7. OMEPRAZOLE [Concomitant]
  8. SIMVASTATIN [Concomitant]
  9. POTASSIUM CITRATE [Concomitant]
  10. POTASSIUM CARBONATE (POTASSIUM CARBONATE) [Concomitant]
  11. CITRIC ACID (CITRIC ACID) [Concomitant]
  12. NEBIVOLOL HCL [Concomitant]

REACTIONS (4)
  - DIVERTICULUM INTESTINAL [None]
  - GALLBLADDER EMPYEMA [None]
  - HIATUS HERNIA [None]
  - INADEQUATE ANALGESIA [None]
